FAERS Safety Report 5407729-7 (Version None)
Quarter: 2007Q3

REPORT INFORMATION
  Report Type: 
  Country: None (occurrence: None)
  Receive Date: 20070803
  Receipt Date: 20070709
  Transmission Date: 20080115
  Serious: Yes (Death, Hospitalization)
  Sender: FDA-Public Use
  Company Number: 6035481

PATIENT
  Age: 71 Year
  Sex: Male

DRUGS (6)
  1. METFORMIN HCL [Suspect]
     Indication: TYPE 2 DIABETES MELLITUS
     Dosage: 1000 MG, ORAL
     Route: 048
     Dates: start: 20061002
  2. SOLOSA (TABLET) (GLIMEPIRIDE) [Concomitant]
  3. LYRICA (CAPSULE) (PREGABALIN) [Concomitant]
  4. CIPROXIN (TABLET) (CIPROFLOXACIN) [Concomitant]
  5. MAALOX (MAGNESIUM HYDROXIDE, ALUMINIUM HYDROXIDE) [Concomitant]
  6. CETIRIZINE HCL [Concomitant]

REACTIONS (13)
  - BLINDNESS [None]
  - CARDIO-RESPIRATORY ARREST [None]
  - COAGULOPATHY [None]
  - DIARRHOEA [None]
  - DRUG TOXICITY [None]
  - DYSARTHRIA [None]
  - LACTIC ACIDOSIS [None]
  - METABOLIC ACIDOSIS [None]
  - MULTI-ORGAN FAILURE [None]
  - MYOGLOBIN BLOOD INCREASED [None]
  - RENAL FAILURE ACUTE [None]
  - SHOCK [None]
  - VOMITING [None]
